FAERS Safety Report 8036113-5 (Version None)
Quarter: 2012Q1

REPORT INFORMATION
  Report Type: 
  Country: None (occurrence: None)
  Receive Date: 20120106
  Receipt Date: 20111227
  Transmission Date: 20120608
  Serious: Yes (Life-Threatening, Hospitalization)
  Sender: FDA-Public Use
  Company Number: 2011SP059945

PATIENT
  Age: 44 Year
  Sex: Female

DRUGS (1)
  1. CERAZETTE (DESOGESTREL /00754001/) [Suspect]
     Indication: ORAL CONTRACEPTION
     Dosage: 1 DF;QD;PO
     Route: 048
     Dates: start: 20090101, end: 20110901

REACTIONS (4)
  - CORONARY ARTERY THROMBOSIS [None]
  - CORONARY ARTERY OCCLUSION [None]
  - ACUTE CORONARY SYNDROME [None]
  - MYOCARDIAL INFARCTION [None]
